FAERS Safety Report 24727204 (Version 1)
Quarter: 2024Q4

REPORT INFORMATION
  Report Type: Spontaneous
  Country: US (occurrence: None)
  Receive Date: 20241212
  Receipt Date: 20241212
  Transmission Date: 20250114
  Serious: Yes (Hospitalization)
  Sender: Public
  Company Number: None

PATIENT
  Sex: Male

DRUGS (3)
  1. MYCOPHENOLATE MOFETIL [Suspect]
     Active Substance: MYCOPHENOLATE MOFETIL
     Indication: Liver transplant
     Dosage: FREQUENCY : TWICE A DAY;?
     Route: 048
     Dates: start: 201707
  2. TACROLIMUS [Suspect]
     Active Substance: TACROLIMUS
     Dosage: FREQUENCY : TWICE A DAY;?
     Route: 048
     Dates: start: 201702
  3. EYLEA [Suspect]
     Active Substance: AFLIBERCEPT

REACTIONS (3)
  - Sepsis [None]
  - Localised infection [None]
  - Osteomyelitis [None]
